FAERS Safety Report 5099607-0 (Version None)
Quarter: 2006Q3

REPORT INFORMATION
  Report Type: 
  Country: None (occurrence: None)
  Receive Date: 20060908
  Receipt Date: 20060827
  Transmission Date: 20061208
  Serious: Yes (Life-Threatening, Hospitalization)
  Sender: FDA-Public Use
  Company Number: DE-BAYER-200611127BVD

PATIENT
  Age: 64 Year

DRUGS (2)
  1. NEXAVAR [Suspect]
     Indication: UNEVALUABLE EVENT
  2. IBUPROFEN [Concomitant]
     Indication: UNEVALUABLE EVENT

REACTIONS (1)
  - RENAL FAILURE [None]
